FAERS Safety Report 8359259-0 (Version None)
Quarter: 2012Q2

REPORT INFORMATION
  Report Type: 
  Country: None (occurrence: None)
  Receive Date: 20120514
  Receipt Date: 20120514
  Transmission Date: 20120825
  Serious: Yes (Other)
  Sender: FDA-Public Use
  Company Number: None

PATIENT
  Age: 35 Year
  Sex: Female
  Weight: 54.4316 kg

DRUGS (1)
  1. LEVAQUIN [Suspect]
     Indication: SINUSITIS
     Dosage: 1 DOSE 500 MG 1 TIME A DAY PO
     Route: 048
     Dates: start: 20120418, end: 20120418

REACTIONS (6)
  - NEUROPATHY PERIPHERAL [None]
  - PANIC ATTACK [None]
  - TENDON PAIN [None]
  - INSOMNIA [None]
  - TOXICITY TO VARIOUS AGENTS [None]
  - ANXIETY [None]
